FAERS Safety Report 23181306 (Version 1)
Quarter: 2023Q4

REPORT INFORMATION
  Report Type: Spontaneous
  Country: US (occurrence: None)
  Receive Date: 20231110
  Receipt Date: 20231110
  Transmission Date: 20240110
  Serious: Yes (Congenital Anomaly, Other)
  Sender: FDA-Public Use
  Company Number: None

PATIENT
  Sex: Male
  Weight: 2.8 kg

DRUGS (2)
  1. LURASIDONE [Suspect]
     Active Substance: LURASIDONE
  2. LORAZEPAM [Suspect]
     Active Substance: LORAZEPAM

REACTIONS (7)
  - Hypernatraemia [None]
  - Hypoglycaemia [None]
  - Post procedural infection [None]
  - Failure to thrive [None]
  - Weight gain poor [None]
  - Orchidopexy [None]
  - Poor feeding infant [None]

NARRATIVE: CASE EVENT DATE: 20190927
